FAERS Safety Report 7231998-4 (Version None)
Quarter: 2011Q1

REPORT INFORMATION
  Report Type: 
  Country: None (occurrence: None)
  Receive Date: 20110118
  Receipt Date: 20110112
  Transmission Date: 20110831
  Serious: Yes (Other)
  Sender: FDA-Public Use
  Company Number: US-RB-020030-10

PATIENT
  Age: 43 Year
  Sex: Female

DRUGS (2)
  1. CHANTIX [Suspect]
     Indication: PRODUCT USED FOR UNKNOWN INDICATION
     Dosage: UNKNOWN DOSING DETAILS
     Route: 065
  2. SUBOXONE [Suspect]
     Indication: PRODUCT USED FOR UNKNOWN INDICATION
     Dosage: DOSING INFORMATION UNKNOWN
     Route: 065

REACTIONS (9)
  - LUNG CYST [None]
  - DYSPNOEA [None]
  - CONDITION AGGRAVATED [None]
  - GOITRE [None]
  - DRUG DEPENDENCE [None]
  - BURNING SENSATION [None]
  - SOCIAL AVOIDANT BEHAVIOUR [None]
  - NAUSEA [None]
  - HEADACHE [None]
